FAERS Safety Report 10048519 (Version 1)
Quarter: 2014Q1

REPORT INFORMATION
  Report Type: Spontaneous
  Country: FR (occurrence: FR)
  Receive Date: 20140331
  Receipt Date: 20140331
  Transmission Date: 20141002
  Serious: Yes (Hospitalization, Other)
  Sender: FDA-Public Use
  Company Number: FR-ELI_LILLY_AND_COMPANY-FR201403007469

PATIENT
  Age: 50 Year
  Sex: Male

DRUGS (3)
  1. ALIMTA [Suspect]
     Indication: LUNG ADENOCARCINOMA STAGE IV
     Dosage: 500 MG/M2, UNK
     Route: 042
     Dates: start: 20140121, end: 20140202
  2. FLAGYL                             /00012501/ [Suspect]
     Indication: LUNG DISORDER
     Dosage: UNK
     Dates: start: 20140211, end: 20140216
  3. CISPLATIN [Concomitant]
     Dosage: 75 MG/M2, UNK
     Dates: start: 20140121, end: 20140204

REACTIONS (9)
  - Confusional state [Recovered/Resolved]
  - Hyperkalaemia [Unknown]
  - Renal failure acute [Unknown]
  - Myoclonus [Recovering/Resolving]
  - Psychomotor skills impaired [Recovering/Resolving]
  - Echolalia [Recovering/Resolving]
  - Pyrexia [Unknown]
  - Diarrhoea [Unknown]
  - Epstein-Barr virus infection [Unknown]
